FAERS Safety Report 11255721 (Version 1)
Quarter: 2015Q3

REPORT INFORMATION
  Report Type: Spontaneous
  Country: US (occurrence: US)
  Receive Date: 20150709
  Receipt Date: 20150709
  Transmission Date: 20151125
  Serious: No
  Sender: FDA-Public Use
  Company Number: US-BAYER-2015-373459

PATIENT
  Age: 80 Year
  Sex: Female

DRUGS (2)
  1. CLARITIN [Suspect]
     Active Substance: LORATADINE
     Indication: DERMATITIS CONTACT
     Dosage: 1 DF, QD
     Route: 048
     Dates: start: 20150622, end: 20150624
  2. ASPIRIN. [Concomitant]
     Active Substance: ASPIRIN
     Dosage: UNK

REACTIONS (3)
  - Insomnia [Recovered/Resolved]
  - Product use issue [None]
  - Insomnia [Recovered/Resolved]

NARRATIVE: CASE EVENT DATE: 20150622
